FAERS Safety Report 18578104 (Version 1)
Quarter: 2020Q4

REPORT INFORMATION
  Report Type: Spontaneous
  Country: US (occurrence: US)
  Receive Date: 20201204
  Receipt Date: 20201204
  Transmission Date: 20210114
  Serious: Yes (Other)
  Sender: FDA-Public Use
  Company Number: US-BIOVITRUM-2020US7048

PATIENT
  Sex: Male
  Weight: 7 kg

DRUGS (5)
  1. SYNAGIS [Suspect]
     Active Substance: PALIVIZUMAB
     Indication: BRONCHOPULMONARY DYSPLASIA
     Dosage: SYNAGIS 100MG/1ML VL LIQUID; SYNAGIS 50MG/0.5ML VL LIQUID
     Route: 030
     Dates: start: 20201124
  2. FLOVENT HFA 110 MCG AER W/ADAP [Concomitant]
  3. SYNAGIS [Suspect]
     Active Substance: PALIVIZUMAB
     Indication: PREMATURE BABY
     Dosage: SYNAGIS 100MG/1ML VL LIQUID; SYNAGIS 50MG/0.5ML VL LIQUID
     Route: 030
     Dates: start: 201903
  4. POLY-VI-SOL 250-50/ML DROPS [Concomitant]
  5. LACTULOSE 10 G/15 ML SOLUTION [Concomitant]
     Active Substance: LACTULOSE

REACTIONS (1)
  - Choking [Unknown]
